FAERS Safety Report 5670997-0 (Version None)
Quarter: 2008Q1

REPORT INFORMATION
  Report Type: 
  Country: None (occurrence: None)
  Receive Date: 20080312
  Receipt Date: 20080228
  Transmission Date: 20080703
  Serious: Yes (Hospitalization)
  Sender: FDA-Public Use
  Company Number: CHPA2008US03694

PATIENT
  Age: 53 Year
  Sex: Female

DRUGS (2)
  1. COMTREX NIGHTTIME COLD+COUGH (NCH)(PARACETAMOL, DEXTROMETHORPHAN, PHEN [Suspect]
     Indication: NASOPHARYNGITIS
     Dosage: 2 DF, ONCE/SINGLE, ORAL
     Route: 048
     Dates: start: 20080226, end: 20080226
  2. MUCINEX [Concomitant]

REACTIONS (1)
  - CHEST PAIN [None]
